FAERS Safety Report 6053343-2 (Version None)
Quarter: 2009Q1

REPORT INFORMATION
  Report Type: 
  Country: None (occurrence: None)
  Receive Date: 20090127
  Receipt Date: 20090121
  Transmission Date: 20090719
  Serious: Yes (Hospitalization)
  Sender: FDA-Public Use
  Company Number: B0555718A

PATIENT
  Age: 84 Year
  Sex: Female
  Weight: 70 kg

DRUGS (14)
  1. MELPHALAN [Suspect]
     Indication: MULTIPLE MYELOMA
     Route: 048
     Dates: start: 20080519
  2. PREDNISONE [Suspect]
     Indication: MULTIPLE MYELOMA
     Route: 048
     Dates: start: 20080519
  3. BLINDED TRIAL MEDICATION [Suspect]
     Indication: MULTIPLE MYELOMA
     Route: 048
     Dates: start: 20080519
  4. ACETYLSALICYLIC ACID [Concomitant]
     Indication: THROMBOSIS PROPHYLAXIS
     Route: 048
     Dates: start: 20080519
  5. LANSOPRAZOLE [Concomitant]
     Indication: PROPHYLAXIS
     Route: 048
     Dates: start: 20080519
  6. EPOGEN [Concomitant]
     Route: 058
     Dates: start: 20080603
  7. FLUTICASONE PROPIONATE [Concomitant]
     Route: 048
     Dates: start: 19880101
  8. ORPHENADRINE HYDROCHLORIDE [Concomitant]
     Indication: ESSENTIAL TREMOR
     Route: 048
     Dates: start: 20010101
  9. VENLAFAXINE HYDROCHLORIDE [Concomitant]
     Route: 048
     Dates: start: 20010101
  10. TELMISARTAN [Concomitant]
     Indication: HYPERTENSION
     Route: 048
     Dates: start: 19950101
  11. AMITRIPTYLINE HYDROCHLORIDE [Concomitant]
     Route: 048
     Dates: start: 20010101
  12. AMILORIDE HYDROCHLORIDE [Concomitant]
     Indication: HYPERTENSION
     Route: 048
     Dates: start: 19950101
  13. FILGRASTIM [Concomitant]
     Indication: NEUTROPENIA
     Dates: start: 20081001, end: 20081024
  14. FERROUS SULFATE TAB [Concomitant]
     Route: 048
     Dates: start: 20080603

REACTIONS (1)
  - PYREXIA [None]
